FAERS Safety Report 4390974-X (Version None)
Quarter: 2004Q3

REPORT INFORMATION
  Report Type: 
  Country: None (occurrence: None)
  Receive Date: 20040701
  Receipt Date: 20040701
  Transmission Date: 20050211
  Serious: Yes (Other)
  Sender: FDA-Public Use
  Company Number: None

PATIENT
  Age: 69 Year
  Sex: Female
  Weight: 62.1428 kg

DRUGS (1)
  1. EQUATE NASAL SPRAY [Suspect]
     Indication: NASAL CONGESTION
     Dosage: 1 SPRAY X 1, NASAL SPRAY
     Route: 045
     Dates: start: 20040501

REACTIONS (4)
  - BURNING SENSATION [None]
  - FACIAL PAIN [None]
  - HEARING IMPAIRED [None]
  - PHARMACEUTICAL PRODUCT COMPLAINT [None]
